FAERS Safety Report 8474574-8 (Version None)
Quarter: 2012Q2

REPORT INFORMATION
  Report Type: 
  Country: None (occurrence: None)
  Receive Date: 20120628
  Receipt Date: 20120622
  Transmission Date: 20120825
  Serious: Yes (Other)
  Sender: FDA-Public Use
  Company Number: PHHY2012DE038606

PATIENT
  Sex: Male

DRUGS (3)
  1. NOVAMINSULFON-RATIOPHARM [Interacting]
     Indication: VIRAL INFECTION
     Dosage: 1000 MG, DAILY
     Dates: start: 20120401
  2. NORFLOXACIN [Interacting]
     Indication: VIRAL INFECTION
     Dosage: 800 MG, DAILY
     Dates: start: 20120401
  3. TRILEPTAL [Suspect]
     Indication: EPILEPSY
     Dosage: 2400 MG, DAILY

REACTIONS (3)
  - VIRAL INFECTION [None]
  - DRUG INTERACTION [None]
  - CONVULSION [None]
